FAERS Safety Report 12816007 (Version 1)
Quarter: 2016Q4

REPORT INFORMATION
  Report Type: Report from Study
  Country: US (occurrence: US)
  Receive Date: 20161006
  Receipt Date: 20161006
  Transmission Date: 20170207
  Serious: Yes (Other)
  Sender: FDA-Public Use
  Company Number: US-ROCHE-1662457

PATIENT
  Age: 68 Year
  Sex: Female
  Weight: 61.8 kg

DRUGS (4)
  1. PACLITAXEL. [Suspect]
     Active Substance: PACLITAXEL
     Indication: MALIGNANT PERITONEAL NEOPLASM
     Dosage: OVER 3 HRS ON DAY 1
     Route: 042
     Dates: start: 20100303
  2. CARBOPLATIN. [Suspect]
     Active Substance: CARBOPLATIN
     Indication: MALIGNANT PERITONEAL NEOPLASM
     Dosage: AUC 6 IV OVER 30 MIN ON DAY 1
     Route: 042
     Dates: start: 20100303
  3. ABT-888 [Suspect]
     Active Substance: VELIPARIB
     Indication: MALIGNANT PERITONEAL NEOPLASM
     Dosage: ON DAYS 1-21
     Route: 048
     Dates: start: 20100303
  4. BEVACIZUMAB [Suspect]
     Active Substance: BEVACIZUMAB
     Indication: MALIGNANT PERITONEAL NEOPLASM
     Dosage: OVER 30- 90 MINS ON DAY 1
     Route: 042
     Dates: start: 20100303

REACTIONS (5)
  - Platelet count decreased [Unknown]
  - Hypoacusis [Unknown]
  - White blood cell count decreased [Unknown]
  - Myelodysplastic syndrome [Unknown]
  - Neutrophil count decreased [Unknown]
